FAERS Safety Report 23524343 (Version 2)
Quarter: 2024Q1

REPORT INFORMATION
  Report Type: Report from Study
  Country: CA (occurrence: CA)
  Receive Date: 20240214
  Receipt Date: 20240222
  Transmission Date: 20240409
  Serious: Yes (Other)
  Sender: FDA-Public Use
  Company Number: CA-JNJFOC-20230207679

PATIENT
  Age: 44 Year
  Sex: Female

DRUGS (2)
  1. STELARA [Suspect]
     Active Substance: USTEKINUMAB
     Indication: Crohn^s disease
     Route: 058
     Dates: start: 20190823, end: 20240214
  2. STELARA [Suspect]
     Active Substance: USTEKINUMAB
     Dosage: PATIENT HAD LAST INJECTION ON 02-MAR-2023
     Route: 058

REACTIONS (18)
  - Multiple sclerosis [Unknown]
  - Abdominal discomfort [Recovered/Resolved]
  - Diplopia [Recovered/Resolved]
  - Hiatus hernia [Unknown]
  - Cerebral disorder [Unknown]
  - Fibrous histiocytoma [Not Recovered/Not Resolved]
  - Alopecia [Unknown]
  - Faecal calprotectin increased [Unknown]
  - Gastrooesophageal reflux disease [Unknown]
  - Hypoaesthesia [Not Recovered/Not Resolved]
  - Uterine enlargement [Unknown]
  - Inflammation [Unknown]
  - Hepatic steatosis [Unknown]
  - Fatigue [Unknown]
  - Drug level decreased [Unknown]
  - Off label use [Unknown]
  - Central nervous system lesion [Unknown]
  - Balance disorder [Unknown]

NARRATIVE: CASE EVENT DATE: 20220101
